FAERS Safety Report 26218853 (Version 1)
Quarter: 2025Q4

REPORT INFORMATION
  Report Type: Spontaneous
  Country: US (occurrence: US)
  Receive Date: 20251231
  Receipt Date: 20251231
  Transmission Date: 20260117
  Serious: No
  Sender: MERCK SHARP & DOHME LLC
  Company Number: US-009507513-2363814

PATIENT
  Age: 55 Year
  Sex: Female

DRUGS (1)
  1. DAPTOMYCIN [Suspect]
     Active Substance: DAPTOMYCIN
     Indication: Stenotrophomonas infection
     Dosage: SHE WAS PLACED ON INTRAVENOUS (IV) DAPTOMYCIN WITH A PICC LINE
     Route: 042

REACTIONS (1)
  - Product use in unapproved indication [Unknown]
